FAERS Safety Report 24264491 (Version 1)
Quarter: 2024Q3

REPORT INFORMATION
  Report Type: Spontaneous
  Country: GB (occurrence: GB)
  Receive Date: 20240829
  Receipt Date: 20240829
  Transmission Date: 20241017
  Serious: Yes (Other)
  Sender: ASTELLAS
  Company Number: GB-MHRA-EMIS-5916-5f049a0d-c8fb-4a21-88c9-e037e04eb013

PATIENT
  Age: 85 Year
  Sex: Female
  Weight: 49 kg

DRUGS (7)
  1. SOLIFENACIN [Suspect]
     Active Substance: SOLIFENACIN
     Route: 065
     Dates: start: 20240807
  2. Spikevax XBB.1.5 COVID-19 mRNA Vaccine 0.1mg/1ml [Concomitant]
     Indication: Product used for unknown indication
     Route: 030
     Dates: start: 20240508, end: 20240508
  3. Buscopan 10mg tablets (Sanofi Consumer Healthcare) [Concomitant]
     Indication: Product used for unknown indication
     Route: 065
     Dates: start: 20240617, end: 20240716
  4. HYDROCORTISONE [Concomitant]
     Active Substance: HYDROCORTISONE\HYDROCORTISONE ACETATE
     Indication: Product used for unknown indication
     Dosage: APPLY THINLY TWICE A DAY AS DIRECTED?15 G
     Route: 065
     Dates: start: 20240617, end: 20240716
  5. Cetraben cream (Thornton + Ross Ltd) [Concomitant]
     Indication: Product used for unknown indication
     Dosage: USE 3-4 TIMES A DAY AND AS A SOAP SUBSTITUTE?500 G
     Dates: start: 20240712
  6. NITROFURANTOIN [Concomitant]
     Active Substance: NITROFURANTOIN
     Indication: Product used for unknown indication
     Dates: start: 20240726
  7. SOLARAZE [Concomitant]
     Active Substance: DICLOFENAC SODIUM
     Indication: Actinic keratosis
     Dosage: TO BE USED TWICE A DAY FOR 60-90 DAYS?50G
     Dates: start: 20240726

REACTIONS (4)
  - Stomatitis [Recovered/Resolved]
  - Paraesthesia oral [Recovered/Resolved]
  - Palatal swelling [Recovered/Resolved]
  - Dry mouth [Recovered/Resolved]

NARRATIVE: CASE EVENT DATE: 20240807
